FAERS Safety Report 19133727 (Version 2)
Quarter: 2021Q2

REPORT INFORMATION
  Report Type: Report from Study
  Country: US (occurrence: US)
  Receive Date: 20210414
  Receipt Date: 20210430
  Transmission Date: 20210717
  Serious: Yes (Hospitalization)
  Sender: FDA-Public Use
  Company Number: US-WORLDWIDE CLINICAL TRIALS-2021US000280

PATIENT
  Age: 63 Year
  Sex: Male
  Weight: 87.1 kg

DRUGS (41)
  1. VIMSELTINIB. [Suspect]
     Active Substance: VIMSELTINIB
     Dosage: 30 MILLIGRAM, WEEKLY (TWICE)
     Route: 048
     Dates: start: 20210215, end: 20210215
  2. VIMSELTINIB. [Suspect]
     Active Substance: VIMSELTINIB
     Dosage: 30 MILLIGRAM, WEEKLY (TWICE)
     Route: 048
     Dates: start: 20210304, end: 20210304
  3. VIMSELTINIB. [Suspect]
     Active Substance: VIMSELTINIB
     Dosage: 30 MILLIGRAM, WEEKLY (TWICE)
     Route: 048
     Dates: start: 20210401, end: 20210401
  4. VIMSELTINIB. [Suspect]
     Active Substance: VIMSELTINIB
     Dosage: 30 MILLIGRAM, WEEKLY (TWICE)
     Route: 048
     Dates: start: 20210112, end: 20210112
  5. VIMSELTINIB. [Suspect]
     Active Substance: VIMSELTINIB
     Dosage: 30 MILLIGRAM, WEEKLY (TWICE)
     Route: 048
     Dates: start: 20210315, end: 20210315
  6. VIMSELTINIB. [Suspect]
     Active Substance: VIMSELTINIB
     Dosage: 30 MILLIGRAM, WEEKLY (TWICE)
     Route: 048
     Dates: start: 20210318, end: 20210318
  7. AMLODIPINE [Concomitant]
     Active Substance: AMLODIPINE BESYLATE
     Indication: HYPERTENSION
     Dosage: 2.5 MILLIGRAM, QD
     Route: 048
     Dates: start: 20090101
  8. FLUCINONIDE [Concomitant]
     Indication: SWELLING
  9. VIMSELTINIB. [Suspect]
     Active Substance: VIMSELTINIB
     Dosage: 30 MILLIGRAM, WEEKLY (TWICE)
     Route: 048
     Dates: start: 20210225, end: 20210225
  10. VIMSELTINIB. [Suspect]
     Active Substance: VIMSELTINIB
     Dosage: 30 MILLIGRAM, WEEKLY (TWICE)
     Route: 048
     Dates: start: 20210301, end: 20210301
  11. VIMSELTINIB. [Suspect]
     Active Substance: VIMSELTINIB
     Indication: GIANT CELL TUMOUR OF TENDON SHEATH
     Dosage: 30 MILLIGRAM, WEEKLY (TWICE)
     Route: 048
     Dates: start: 20201222, end: 20201222
  12. VIMSELTINIB. [Suspect]
     Active Substance: VIMSELTINIB
     Dosage: 30 MILLIGRAM, WEEKLY (TWICE)
     Route: 048
     Dates: start: 20210128, end: 20210128
  13. VIMSELTINIB. [Suspect]
     Active Substance: VIMSELTINIB
     Dosage: 30 MILLIGRAM, WEEKLY (TWICE)
     Route: 048
     Dates: start: 20210222, end: 20210222
  14. VIMSELTINIB. [Suspect]
     Active Substance: VIMSELTINIB
     Dosage: 30 MILLIGRAM, WEEKLY (TWICE)
     Route: 048
     Dates: start: 20210329, end: 20210329
  15. VIMSELTINIB. [Suspect]
     Active Substance: VIMSELTINIB
     Dosage: 30 MILLIGRAM, WEEKLY (TWICE)
     Route: 048
     Dates: start: 20210417
  16. VITAMIN D3 [Concomitant]
     Active Substance: CHOLECALCIFEROL
     Indication: SUPPLEMENTATION THERAPY
     Dosage: 50000 INTERNATIONAL UNIT(EVERY 15 DAYS)
     Route: 048
     Dates: start: 20190314
  17. FENTANYL. [Concomitant]
     Active Substance: FENTANYL
     Indication: PAIN
     Dosage: 25 MCG/1 HR,(1 PATCH EVERY 72 HOURS)
     Route: 062
     Dates: start: 20201221
  18. ACETAMINOPHEN. [Concomitant]
     Active Substance: ACETAMINOPHEN
     Indication: PAIN
     Dosage: 1000 MILLIGRAM(EVERY 12 HOURS)
     Route: 048
     Dates: start: 20201228
  19. VIMSELTINIB. [Suspect]
     Active Substance: VIMSELTINIB
     Dosage: 30 MILLIGRAM, WEEKLY (TWICE)
     Route: 048
     Dates: start: 20201229, end: 20201229
  20. VIMSELTINIB. [Suspect]
     Active Substance: VIMSELTINIB
     Dosage: 30 MILLIGRAM, WEEKLY (TWICE)
     Route: 048
     Dates: start: 20210105, end: 20210105
  21. VIMSELTINIB. [Suspect]
     Active Substance: VIMSELTINIB
     Dosage: 30 MILLIGRAM, WEEKLY (TWICE)
     Route: 048
     Dates: start: 20210125, end: 20210125
  22. VIMSELTINIB. [Suspect]
     Active Substance: VIMSELTINIB
     Dosage: 30 MILLIGRAM, WEEKLY (TWICE)
     Route: 048
     Dates: start: 20210208, end: 20210208
  23. VIMSELTINIB. [Suspect]
     Active Substance: VIMSELTINIB
     Dosage: 30 MILLIGRAM, WEEKLY (TWICE)
     Route: 048
     Dates: start: 20210311, end: 20210311
  24. VIMSELTINIB. [Suspect]
     Active Substance: VIMSELTINIB
     Dosage: 30 MILLIGRAM, WEEKLY (TWICE)
     Route: 048
     Dates: start: 20210325, end: 20210325
  25. VIMSELTINIB. [Suspect]
     Active Substance: VIMSELTINIB
     Dosage: 30 MILLIGRAM, WEEKLY (TWICE)
     Route: 048
     Dates: start: 20201226, end: 20201226
  26. VIMSELTINIB. [Suspect]
     Active Substance: VIMSELTINIB
     Dosage: 30 MILLIGRAM, WEEKLY (TWICE)
     Route: 048
     Dates: start: 20210308, end: 20210308
  27. DILAUDID [Concomitant]
     Active Substance: HYDROMORPHONE HYDROCHLORIDE
     Dosage: 2 MILLIGRAM, QD
     Route: 048
     Dates: start: 20210107
  28. LEVOTHYROXINE. [Concomitant]
     Active Substance: LEVOTHYROXINE
     Indication: HYPOTHYROIDISM
     Dosage: 150 MICROGRAM, QD
     Route: 048
     Dates: start: 20210114
  29. VIMSELTINIB. [Suspect]
     Active Substance: VIMSELTINIB
     Dosage: 30 MILLIGRAM, WEEKLY (TWICE)
     Route: 048
     Dates: start: 20210121, end: 20210121
  30. VIMSELTINIB. [Suspect]
     Active Substance: VIMSELTINIB
     Dosage: 30 MILLIGRAM, WEEKLY (TWICE)
     Route: 048
     Dates: start: 20210204, end: 20210204
  31. DILAUDID [Concomitant]
     Active Substance: HYDROMORPHONE HYDROCHLORIDE
     Indication: PAIN
     Dosage: 2 MILLIGRAM, Q4H
     Route: 048
     Dates: start: 20201204
  32. FLUCINONIDE [Concomitant]
     Indication: ARTHRALGIA
     Dosage: 0.05 TOPICAL OINTMENT, BID
     Route: 061
     Dates: start: 20191031
  33. NARCAN [Concomitant]
     Active Substance: NALOXONE HYDROCHLORIDE
     Indication: DRUG ABUSE
     Dosage: 1 SPRAY
     Route: 045
     Dates: start: 20201222
  34. VIMSELTINIB. [Suspect]
     Active Substance: VIMSELTINIB
     Dosage: 30 MILLIGRAM, WEEKLY (TWICE)
     Route: 048
     Dates: start: 20210102, end: 20210102
  35. VIMSELTINIB. [Suspect]
     Active Substance: VIMSELTINIB
     Dosage: 30 MILLIGRAM, WEEKLY (TWICE)
     Route: 048
     Dates: start: 20210109, end: 20210109
  36. VIMSELTINIB. [Suspect]
     Active Substance: VIMSELTINIB
     Dosage: 30 MILLIGRAM, WEEKLY (TWICE)
     Route: 048
     Dates: start: 20210116, end: 20210116
  37. VIMSELTINIB. [Suspect]
     Active Substance: VIMSELTINIB
     Dosage: 30 MILLIGRAM, WEEKLY (TWICE)
     Route: 048
     Dates: start: 20210201, end: 20210201
  38. VIMSELTINIB. [Suspect]
     Active Substance: VIMSELTINIB
     Dosage: 30 MILLIGRAM, WEEKLY (TWICE)
     Route: 048
     Dates: start: 20210211, end: 20210211
  39. VIMSELTINIB. [Suspect]
     Active Substance: VIMSELTINIB
     Dosage: 30 MILLIGRAM, WEEKLY (TWICE)
     Route: 048
     Dates: start: 20210219, end: 20210219
  40. VIMSELTINIB. [Suspect]
     Active Substance: VIMSELTINIB
     Dosage: 30 MILLIGRAM, WEEKLY (TWICE)
     Route: 048
     Dates: start: 20210323, end: 20210323
  41. CANDESARTAN+HYDROCHLOROTHIAZIDE [Concomitant]
     Active Substance: CANDESARTAN CILEXETIL\HYDROCHLOROTHIAZIDE
     Indication: HYPERTENSION
     Dosage: 64 MILLIGRAM, QD
     Route: 048
     Dates: start: 20090101

REACTIONS (2)
  - Eczema [Recovered/Resolved]
  - Oedema peripheral [Recovered/Resolved]

NARRATIVE: CASE EVENT DATE: 20210404
